FAERS Safety Report 5012445-X (Version None)
Quarter: 2006Q2

REPORT INFORMATION
  Report Type: 
  Country: None (occurrence: None)
  Receive Date: 20060526
  Receipt Date: 20060525
  Transmission Date: 20061013
  Serious: Yes (Hospitalization)
  Sender: FDA-Public Use
  Company Number: GB-BOEHRINGER INGELHEIM PHARMACEUTICALS, INC.-2006-UK-02615UK

PATIENT
  Age: 81 Year
  Sex: Female

DRUGS (6)
  1. TIOTROPIUM (00015/0190/A) [Suspect]
     Indication: CHRONIC OBSTRUCTIVE PULMONARY DISEASE
     Route: 055
     Dates: start: 20060505, end: 20060511
  2. CANDESARTAN [Concomitant]
     Indication: HYPERTENSION
     Dosage: 4 MG ONCE DAILY
     Route: 048
  3. FUROSEMIDE [Concomitant]
     Dosage: 20 MG ONCE IN THE MORNING
     Route: 048
  4. PREDNISOLONE [Concomitant]
     Indication: CHRONIC OBSTRUCTIVE PULMONARY DISEASE
     Dosage: 5-20MG
     Route: 048
  5. SYMBICORT [Concomitant]
     Dosage: 400/12 TWICE DAILY.
     Route: 055
  6. NITRAZEPAM [Concomitant]
     Indication: INSOMNIA
     Dosage: 5 MG ONCE NIGHTLY.
     Route: 065

REACTIONS (3)
  - ANGLE CLOSURE GLAUCOMA [None]
  - BLINDNESS UNILATERAL [None]
  - HEADACHE [None]
